FAERS Safety Report 7113417-1 (Version None)
Quarter: 2010Q4

REPORT INFORMATION
  Report Type: 
  Country: None (occurrence: None)
  Receive Date: 20101119
  Receipt Date: 20100916
  Transmission Date: 20110411
  Serious: No
  Sender: FDA-Public Use
  Company Number: A0881488A

PATIENT
  Sex: Female

DRUGS (1)
  1. ARZERRA [Suspect]
     Dates: start: 20100901, end: 20100901

REACTIONS (1)
  - CONJUNCTIVAL HAEMORRHAGE [None]
